FAERS Safety Report 12608039 (Version 1)
Quarter: 2016Q3

REPORT INFORMATION
  Report Type: Spontaneous
  Country: IR (occurrence: IR)
  Receive Date: 20160729
  Receipt Date: 20160729
  Transmission Date: 20161109
  Serious: Yes (Death, Other)
  Sender: FDA-Public Use
  Company Number: IR-ASTELLAS-2016US029051

PATIENT
  Age: 74 Year
  Sex: Male

DRUGS (1)
  1. XTANDI [Suspect]
     Active Substance: ENZALUTAMIDE
     Indication: HORMONE-REFRACTORY PROSTATE CANCER
     Dosage: UNK UNK, UNKNOWN FREQ.
     Route: 048

REACTIONS (7)
  - Wrong technique in product usage process [Unknown]
  - Depressed level of consciousness [Unknown]
  - Asthenia [Unknown]
  - Death [Fatal]
  - Lung disorder [Unknown]
  - Respiratory disorder [Unknown]
  - Dysphagia [Unknown]
